FAERS Safety Report 9524741 (Version 3)
Quarter: 2013Q4

REPORT INFORMATION
  Report Type: Spontaneous
  Country: ES (occurrence: None)
  Receive Date: 20130912
  Receipt Date: 20131120
  Transmission Date: 20140711
  Serious: Yes (Death)
  Sender: FDA-Public Use
  Company Number: SYM-2013-10526

PATIENT
  Age: 66 Year
  Sex: Male

DRUGS (11)
  1. 5 FU [Suspect]
     Indication: COLORECTAL CANCER METASTATIC
     Route: 041
     Dates: start: 20130409, end: 20130409
  2. AFLIBERCEPT [Suspect]
     Indication: COLORECTAL CANCER METASTATIC
     Route: 041
     Dates: start: 20130409, end: 20130409
  3. IRINOTECAN [Suspect]
     Indication: COLORECTAL CANCER METASTATIC
     Route: 041
     Dates: start: 20130409, end: 20130409
  4. LEUCOVORIN (FOLINIC ACID) (SOLUTION FOR INFUSION) (FOLINIC ACID) [Suspect]
     Indication: COLORECTAL CANCER METASTATIC
     Route: 041
     Dates: start: 20130409, end: 20130409
  5. MOVICOL (POLYETHYL. GLYC. W/POTAS. CHLOR./SOD. BICARB.) (SODIUM BICARBONATE, POTASSIUM CHLORIDE, MACROGOL) [Concomitant]
  6. FLATORIL (FLATORIL /00807201/) (DIMETICONE, CLEBOPRIDE) [Concomitant]
  7. NOLOTIL (NOLOTIL /00473101/) (DEXTROPROPOXYPHENE, METAMIZOLE MAGNESOUM) [Concomitant]
  8. ADIRO (ACETYLSALICYLIC ACID) (ACETYLSALICYLIC ACID) [Concomitant]
  9. LEXATIN (BROMAZEPAM) (BROMAZEPAM) [Concomitant]
  10. DENVAR (CEFIXIME) (CEFITXIME) [Concomitant]
  11. DOLANTINA (PETHIDINE HYDROCHLORIDE) (PETHIDINE HYDROCHLORIDE) [Concomitant]

REACTIONS (1)
  - Intestinal perforation [None]
